FAERS Safety Report 19417367 (Version 1)
Quarter: 2021Q2

REPORT INFORMATION
  Report Type: Spontaneous
  Country: US (occurrence: US)
  Receive Date: 20210614
  Receipt Date: 20210614
  Transmission Date: 20210717
  Serious: No
  Sender: FDA-Public Use
  Company Number: None

PATIENT
  Age: 65 Year
  Sex: Male
  Weight: 114 kg

DRUGS (1)
  1. HYDROCHLOROTHIAZIDE (HYDROCHLOROTHIAZIDE 25MG TAB) [Suspect]
     Active Substance: HYDROCHLOROTHIAZIDE
     Indication: HYPERTENSION
     Route: 048
     Dates: start: 20200717, end: 20200916

REACTIONS (4)
  - Inappropriate antidiuretic hormone secretion [None]
  - Hyponatraemia [None]
  - Polydipsia [None]
  - Suicidal ideation [None]

NARRATIVE: CASE EVENT DATE: 20200916
